FAERS Safety Report 21362283 (Version 2)
Quarter: 2022Q3

REPORT INFORMATION
  Report Type: Report from Study
  Country: GB (occurrence: GB)
  Receive Date: 20220922
  Receipt Date: 20220925
  Transmission Date: 20221026
  Serious: Yes (Hospitalization, Other)
  Sender: FDA-Public Use
  Company Number: GB-BRISTOL-MYERS SQUIBB COMPANY-2022-101692

PATIENT
  Age: 63 Year
  Sex: Female
  Weight: 74 kg

DRUGS (4)
  1. PACLITAXEL [Suspect]
     Active Substance: PACLITAXEL
     Indication: Pancreatic carcinoma
     Dosage: D1 OF 14DAYS CYCLE AND IN CYCLE 2
     Route: 042
     Dates: start: 20220712, end: 20220809
  2. OXALIPLATIN [Suspect]
     Active Substance: OXALIPLATIN
     Indication: Pancreatic carcinoma metastatic
     Dosage: D1 OF 14DAYS CYCLE AND IN CYCLE 2
     Route: 042
     Dates: start: 20220712, end: 20220809
  3. FLUOROURACIL [Suspect]
     Active Substance: FLUOROURACIL
     Indication: Pancreatic carcinoma metastatic
     Dosage: 2250MG CONTINUOUS INFUSION ON DAY 1-2 OF 14DAY CYCLE
     Route: 042
     Dates: start: 20220712, end: 20220811
  4. LEUCOVORIN [Suspect]
     Active Substance: LEUCOVORIN
     Indication: Pancreatic carcinoma metastatic
     Dosage: D1 OF 14DAYS CYCLE AND IN CYCLE 2
     Route: 042
     Dates: start: 20220712, end: 20220809

REACTIONS (2)
  - Pneumonia [Not Recovered/Not Resolved]
  - Biliary sepsis [Unknown]

NARRATIVE: CASE EVENT DATE: 20220902
